FAERS Safety Report 6579381-9 (Version None)
Quarter: 2010Q1

REPORT INFORMATION
  Report Type: 
  Country: None (occurrence: None)
  Receive Date: 20100212
  Receipt Date: 20100210
  Transmission Date: 20100710
  Serious: No
  Sender: FDA-Public Use
  Company Number: US-ROXANE LABORATORIES, INC.-2010-RO-00148RO

PATIENT
  Sex: Female

DRUGS (5)
  1. MYCOPHENOLATE MOFETIL [Suspect]
     Indication: LIVER TRANSPLANT
     Dosage: 1000 MG
  2. MODIFIED CYCLOSPORIN [Concomitant]
  3. PRILOSEC [Concomitant]
  4. ATENOLOL [Concomitant]
     Indication: BLOOD PRESSURE
  5. NORVASC [Concomitant]

REACTIONS (1)
  - HERPES ZOSTER [None]
